FAERS Safety Report 11401193 (Version 1)
Quarter: 2015Q3

REPORT INFORMATION
  Report Type: Spontaneous
  Country: US (occurrence: US)
  Receive Date: 20150820
  Receipt Date: 20150820
  Transmission Date: 20151125
  Serious: Yes (Hospitalization)
  Sender: FDA-Public Use
  Company Number: US-TARO PHARMACEUTICALS USA.,INC-2015SUN01836

PATIENT
  Age: 63 Year
  Sex: Male

DRUGS (16)
  1. VITAMIN E [Interacting]
     Active Substance: .ALPHA.-TOCOPHEROL
     Indication: SUPPLEMENTATION THERAPY
     Route: 065
  2. ZYMAX [Interacting]
     Active Substance: DIETARY SUPPLEMENT
     Indication: SUPPLEMENTATION THERAPY
     Route: 065
  3. AMLODIPINE [Concomitant]
     Active Substance: AMLODIPINE BESYLATE
  4. MELATONIN [Interacting]
     Active Substance: MELATONIN
     Indication: SUPPLEMENTATION THERAPY
     Route: 065
  5. EICOSAPENTAENOIC ACID-DOCOSAHEXAENOIC ACID (EPA-DHA) [Interacting]
     Active Substance: DOCONEXENT\ICOSAPENT
     Indication: SUPPLEMENTATION THERAPY
     Route: 065
  6. DEHYDROEPIANDROSTERONE (DHEA) [Interacting]
     Active Substance: PRASTERONE
     Indication: SUPPLEMENTATION THERAPY
     Route: 065
  7. HYDROCHLOROTHIAZIDE. [Concomitant]
     Active Substance: HYDROCHLOROTHIAZIDE
  8. PREDNISOLONE. [Suspect]
     Active Substance: PREDNISOLONE
     Indication: SUPPLEMENTATION THERAPY
     Route: 065
  9. TESTOSTERONE. [Interacting]
     Active Substance: TESTOSTERONE
     Indication: SUPPLEMENTATION THERAPY
     Route: 065
  10. MULTIVITAMIN [Interacting]
     Active Substance: VITAMINS
     Indication: SUPPLEMENTATION THERAPY
     Route: 065
  11. LIPOTAIN [Interacting]
     Active Substance: NIACIN
     Indication: SUPPLEMENTATION THERAPY
     Route: 065
  12. LISINOPRIL. [Concomitant]
     Active Substance: LISINOPRIL
  13. METOPROLOL [Concomitant]
     Active Substance: METOPROLOL
  14. ASPIRIN. [Interacting]
     Active Substance: ASPIRIN
     Indication: SUPPLEMENTATION THERAPY
     Route: 065
  15. ARMOUR THYROID [Interacting]
     Active Substance: THYROID, PORCINE\THYROID, UNSPECIFIED
     Indication: SUPPLEMENTATION THERAPY
     Route: 065
  16. GROWTH HORMONE [Interacting]
     Active Substance: SOMATROPIN
     Indication: SUPPLEMENTATION THERAPY
     Route: 065

REACTIONS (5)
  - Thalamic infarction [Recovered/Resolved]
  - Loss of consciousness [Recovered/Resolved]
  - Drug interaction [Recovered/Resolved]
  - Toxicity to various agents [Recovered/Resolved]
  - Cerebral venous thrombosis [Recovered/Resolved]
